FAERS Safety Report 24323786 (Version 2)
Quarter: 2024Q4

REPORT INFORMATION
  Report Type: Spontaneous
  Country: GB (occurrence: GB)
  Receive Date: 20240916
  Receipt Date: 20241010
  Transmission Date: 20250115
  Serious: No
  Sender: EMD SERONO INC
  Company Number: GB-Merck Healthcare KGaA-2024048424

PATIENT
  Sex: Female

DRUGS (1)
  1. AVELUMAB [Suspect]
     Active Substance: AVELUMAB
     Indication: Transitional cell carcinoma

REACTIONS (2)
  - Pain [Recovering/Resolving]
  - Haemorrhage [Not Recovered/Not Resolved]
